FAERS Safety Report 5498955-X (Version None)
Quarter: 2007Q4

REPORT INFORMATION
  Report Type: 
  Country: None (occurrence: None)
  Receive Date: 20071026
  Receipt Date: 20070509
  Transmission Date: 20080405
  Serious: No
  Sender: FDA-Public Use
  Company Number: A0650600A

PATIENT
  Age: 58 Year
  Sex: Female

DRUGS (5)
  1. ADVAIR DISKUS 100/50 [Suspect]
     Dosage: 1PUFF TWICE PER DAY
     Route: 055
     Dates: start: 20070411
  2. SEREVENT [Suspect]
     Dosage: 1PUFF TWICE PER DAY
     Route: 055
     Dates: start: 20070410, end: 20070410
  3. FIORINAL [Concomitant]
  4. OGEN [Concomitant]
  5. AMITRIPTYLINE HCL [Concomitant]

REACTIONS (4)
  - DYSGEUSIA [None]
  - RASH [None]
  - SWELLING [None]
  - THROAT TIGHTNESS [None]
